FAERS Safety Report 7297997-1 (Version None)
Quarter: 2011Q1

REPORT INFORMATION
  Report Type: 
  Country: None (occurrence: None)
  Receive Date: 20110217
  Receipt Date: 20110215
  Transmission Date: 20110831
  Serious: Yes (Other)
  Sender: FDA-Public Use
  Company Number: US-PFIZER INC-2011033713

PATIENT
  Sex: Male
  Weight: 65.76 kg

DRUGS (1)
  1. CHANTIX [Suspect]
     Indication: SMOKING CESSATION THERAPY
     Dosage: 0.5 MG, 1X/DAY
     Route: 048
     Dates: start: 20110211, end: 20110215

REACTIONS (4)
  - FATIGUE [None]
  - NIGHTMARE [None]
  - HALLUCINATION, VISUAL [None]
  - HALLUCINATION, AUDITORY [None]
